FAERS Safety Report 6296106-5 (Version None)
Quarter: 2009Q3

REPORT INFORMATION
  Report Type: 
  Country: None (occurrence: None)
  Receive Date: 20090804
  Receipt Date: 20090722
  Transmission Date: 20100115
  Serious: Yes (Death, Other)
  Sender: FDA-Public Use
  Company Number: ES-CELGENEUS-144-50794-09072340

PATIENT
  Sex: Male

DRUGS (2)
  1. VIDAZA [Suspect]
     Route: 058
     Dates: end: 20070409
  2. VIDAZA [Suspect]
     Route: 058
     Dates: start: 20070614

REACTIONS (11)
  - ANAEMIA [None]
  - ASTHENIA [None]
  - CANDIDIASIS [None]
  - COLITIS [None]
  - FEBRILE NEUTROPENIA [None]
  - INJECTION SITE REACTION [None]
  - PSEUDOMONAS INFECTION [None]
  - SEPTIC SHOCK [None]
  - TUBERCULOSIS [None]
  - URINARY TRACT INFECTION [None]
  - URINARY TRACT INFECTION FUNGAL [None]
